FAERS Safety Report 9610917 (Version 1)
Quarter: 2013Q4

REPORT INFORMATION
  Report Type: Spontaneous
  Country: US (occurrence: US)
  Receive Date: 20131009
  Receipt Date: 20131009
  Transmission Date: 20140711
  Serious: Yes (Other)
  Sender: FDA-Public Use
  Company Number: US-ELI_LILLY_AND_COMPANY-US201310000289

PATIENT
  Sex: Male

DRUGS (2)
  1. HUMALOG LISPRO [Suspect]
     Indication: DIABETES MELLITUS
  2. HUMALOG LISPRO [Suspect]

REACTIONS (3)
  - Carotid artery occlusion [Unknown]
  - Underdose [Unknown]
  - Drug dose omission [Unknown]
